FAERS Safety Report 20078011 (Version 1)
Quarter: 2021Q4

REPORT INFORMATION
  Report Type: Spontaneous
  Country: NG (occurrence: NG)
  Receive Date: 20211117
  Receipt Date: 20211117
  Transmission Date: 20220303
  Serious: Yes (Death, Life-Threatening, Hospitalization, Other)
  Sender: FDA-Public Use
  Company Number: None

PATIENT
  Age: 19 Year
  Sex: Male

DRUGS (37)
  1. PREDNISOLONE [Suspect]
     Active Substance: PREDNISOLONE
     Indication: Philadelphia positive acute lymphocytic leukaemia
     Dosage: 60 MILLIGRAM/SQ. METER, DAY 1-7, INDUCTION 1A
     Route: 048
     Dates: start: 2020
  2. PREDNISOLONE [Suspect]
     Active Substance: PREDNISOLONE
     Indication: Acute lymphocytic leukaemia
     Dosage: 40 GRAM PER SQUARE METRE, UNK, DAY 1-7, CYCLICAL MAINTENANCE
     Route: 048
     Dates: start: 2020
  3. PREDNISOLONE [Suspect]
     Active Substance: PREDNISOLONE
     Dosage: 40 GRAM PER SQUARE METRE, CYCLICAL ( PO DAY 8?28)
     Route: 048
     Dates: start: 2020
  4. METHOTREXATE [Suspect]
     Active Substance: METHOTREXATE
     Indication: Prophylaxis
     Dosage: 12 MILLIGRAM, CYCLICAL (IT DAY 8, 15, 22, 29)
     Route: 037
     Dates: start: 2020
  5. METHOTREXATE [Suspect]
     Active Substance: METHOTREXATE
     Indication: Acute lymphocytic leukaemia
     Dosage: 20 MILLIGRAM/SQ. METER, LOW RISK ON DAY 1, 11, 21, 31, 41
     Route: 042
     Dates: start: 2020
  6. METHOTREXATE [Suspect]
     Active Substance: METHOTREXATE
     Dosage: 100 MILLIGRAM/SQ. METER, UNK (HIGH RISK)
     Route: 065
     Dates: start: 2020
  7. METHOTREXATE [Suspect]
     Active Substance: METHOTREXATE
     Dosage: 50 MILLIGRAM/SQ. METER, UNK INCREASED UP TO 5 DOSES, INDUCTION 1A  DAY 8, 15, 22, 29
     Route: 037
     Dates: start: 2020
  8. METHOTREXATE [Suspect]
     Active Substance: METHOTREXATE
     Dosage: UNK (INDUCTION 1B 28 DAYS REPEAT INDUCTION 1A AS IN INDUCTION 1A)
     Route: 065
     Dates: start: 2020
  9. METHOTREXATE [Suspect]
     Active Substance: METHOTREXATE
     Dosage: 15 MILLIGRAM/SQ. METER, WEEKLY (MAINTAINCE THERAPY)
     Route: 048
     Dates: start: 2020
  10. METHOTREXATE [Suspect]
     Active Substance: METHOTREXATE
     Dosage: 12 MILLIGRAM, CYCLICAL (IT DAY 1 OF EACH CYCLE)
     Route: 037
     Dates: start: 2020
  11. HYDROCORTISONE [Suspect]
     Active Substance: HYDROCORTISONE
     Indication: Prophylaxis
     Dosage: 20 MILLIGRAM, CYCLICAL (20 MG; IT DAY 8, 15, 22, 29)
     Route: 037
     Dates: start: 2020
  12. ASPARAGINASE [Suspect]
     Active Substance: ASPARAGINASE
     Indication: Philadelphia positive acute lymphocytic leukaemia
     Dosage: 6000 MICROGRAM/SQ. METER, CYCLICAL (DAY 8, 10, 12, 14, 16, 18, 20, 22, 24, 26)
     Route: 058
     Dates: start: 2020
  13. ASPARAGINASE [Suspect]
     Active Substance: ASPARAGINASE
     Indication: Acute lymphocytic leukaemia
     Dosage: 6000 U/M2, CYCLICAL 1, 3, 5, 7 (MAINTENANCE 8 CYCLES)
     Route: 058
     Dates: start: 2020
  14. CYTARABINE [Suspect]
     Active Substance: CYTARABINE
     Indication: Prophylaxis
     Dosage: 30 MILLIGRAM, UNK, DAY 8, 15, 22, 29 AS INDUCTION 1A TILL 29 DAYS
     Route: 037
     Dates: start: 2020
  15. CYTARABINE [Suspect]
     Active Substance: CYTARABINE
     Dosage: 75 MILLIGRAM/SQ. METER, UNK, DAY 1-4, 8-11, 15-18, 22-25, INDUCTION 2A 28 DAYS
     Route: 042
     Dates: start: 2020
  16. CYTARABINE [Suspect]
     Active Substance: CYTARABINE
     Dosage: UNK, INDUCTION 1A IT DAY 8, 15, 22, 29 INDUCTION 2B 56 DAYS
     Route: 065
     Dates: start: 2020
  17. CYTARABINE [Suspect]
     Active Substance: CYTARABINE
     Dosage: 100 MILLIGRAM/SQ. METER 12-HOURLY DAY 1-3, 15-17, CONSOLIDATION 28 DAYS
     Route: 058
     Dates: start: 2020
  18. IMATINIB MESYLATE [Suspect]
     Active Substance: IMATINIB MESYLATE
     Indication: Philadelphia positive acute lymphocytic leukaemia
     Dosage: 600 MILLIGRAM, UNK
     Route: 065
     Dates: start: 2020
  19. DAUNORUBICIN [Suspect]
     Active Substance: DAUNORUBICIN
     Indication: Philadelphia positive acute lymphocytic leukaemia
     Dosage: 20 MILLIGRAM/SQ. METER, CYCLICAL (20 MG/M2 IV DAY 8, 15, 29)
     Route: 042
     Dates: start: 2020
  20. DAUNORUBICIN [Suspect]
     Active Substance: DAUNORUBICIN
     Indication: Acute lymphocytic leukaemia
     Dosage: 20 MILLIGRAM/SQ. METER DAY 15 (CONSOLIDATION 28 DAYS)
     Route: 042
     Dates: start: 2020
  21. DAUNORUBICIN [Suspect]
     Active Substance: DAUNORUBICIN
     Dosage: 20 MILLIGRAM/SQ. METER, CYCLICAL, DAY 1, MAINTENANCE 8 CYCLES
     Route: 042
     Dates: start: 2020
  22. VINCRISTINE [Suspect]
     Active Substance: VINCRISTINE
     Indication: Philadelphia positive acute lymphocytic leukaemia
     Dosage: 1.4 MILLIGRAM/SQ. METER, CYCLICAL (1.4 MG/M2 IV DAY 8, 15, 22, 29)
     Route: 042
     Dates: start: 2020
  23. VINCRISTINE [Suspect]
     Active Substance: VINCRISTINE
     Indication: Acute lymphocytic leukaemia
     Dosage: 1.4 MILLIGRAM/SQ. METER, CYCLICAL, DAY 1 , MAINTENANCE
     Route: 042
     Dates: start: 2020
  24. VINCRISTINE [Suspect]
     Active Substance: VINCRISTINE
     Dosage: 1.4 MILLIGRAM/SQ. METER (DAY 1, 15) (CONSOLIDATION 28 DAYS)
     Route: 042
     Dates: start: 2020
  25. CYCLOPHOSPHAMIDE [Suspect]
     Active Substance: CYCLOPHOSPHAMIDE
     Indication: Prophylaxis
     Dosage: 750 MILLIGRAM/SQ. METER, UNK, DAY 1, 15, INDUCTION 2A 28 DAYS
     Route: 042
     Dates: start: 2020
  26. CYCLOPHOSPHAMIDE [Suspect]
     Active Substance: CYCLOPHOSPHAMIDE
     Dosage: 750 MILLIGRAM/SQ. METER, UNK, DAY 1-15
     Route: 042
     Dates: start: 2020
  27. CYCLOPHOSPHAMIDE [Suspect]
     Active Substance: CYCLOPHOSPHAMIDE
     Dosage: 750 MILLIGRAM ( DAY 1) (CONSOLIDATION 28 DAYS)
     Route: 042
     Dates: start: 2020
  28. MERCAPTOPURINE [Suspect]
     Active Substance: MERCAPTOPURINE
     Indication: Prophylaxis
     Dosage: 60 MILLIGRAM/SQ. METER, UNK, DAY 1-28 INDUCTION 2A 28 DAYS
     Route: 048
     Dates: start: 2020
  29. MERCAPTOPURINE [Suspect]
     Active Substance: MERCAPTOPURINE
     Indication: Acute lymphocytic leukaemia
     Dosage: 60 MILLIGRAM/SQ. METER, UNK, DAY 1-56, INDUCTION 2A 28 DAYS
     Route: 048
     Dates: start: 2020
  30. MERCAPTOPURINE [Suspect]
     Active Substance: MERCAPTOPURINE
     Dosage: 75 MILLIGRAM/SQ. METER, UNK, DAY 1-7, 15-21
     Route: 048
     Dates: start: 2020
  31. MERCAPTOPURINE [Suspect]
     Active Substance: MERCAPTOPURINE
     Dosage: 75 MILLIGRAM/SQ. METER, CYCLICAL, DAILY ? 12 DOSES
     Route: 048
     Dates: start: 2020
  32. PROGUANIL [Concomitant]
     Active Substance: PROGUANIL
     Indication: Product used for unknown indication
     Dosage: UNK, 1 DAY
     Route: 065
  33. FOLIC ACID [Concomitant]
     Active Substance: FOLIC ACID
     Indication: Product used for unknown indication
     Dosage: UNK, PER DAY
     Route: 065
  34. VITAMIN B COMPLEX [Concomitant]
     Active Substance: CYANOCOBALAMIN\DEXPANTHENOL\NIACINAMIDE\PYRIDOXINE HYDROCHLORIDE\RIBOFLAVIN 5^-PHOSPHATE SODIUM\THIA
     Indication: Product used for unknown indication
     Dosage: UNK, PER DAY
     Route: 065
  35. VITAMIN C [Concomitant]
     Active Substance: ASCORBIC ACID
     Indication: Product used for unknown indication
     Dosage: UNK, 1 DAY
     Route: 065
  36. ARTESUNATE [Concomitant]
     Active Substance: ARTESUNATE
     Indication: Plasmodium falciparum infection
     Dosage: UNK
     Route: 065
     Dates: start: 202005
  37. COTRIMOXAZOLE [Concomitant]
     Active Substance: SULFAMETHOXAZOLE\TRIMETHOPRIM
     Indication: Antifungal prophylaxis
     Dosage: UNK
     Route: 065
     Dates: start: 2020

REACTIONS (6)
  - Encephalitis [Fatal]
  - Febrile neutropenia [Unknown]
  - Sepsis [Unknown]
  - Tinea versicolour [Unknown]
  - Subcutaneous abscess [Unknown]
  - Staphylococcal infection [Unknown]

NARRATIVE: CASE EVENT DATE: 20200101
